FAERS Safety Report 16342866 (Version 1)
Quarter: 2019Q2

REPORT INFORMATION
  Report Type: Spontaneous
  Country: US (occurrence: US)
  Receive Date: 20190417
  Receipt Date: 20190417
  Transmission Date: 20190711
  Serious: No
  Sender: FDA-Public Use
  Company Number: None

PATIENT
  Age: 59 Year
  Sex: Female
  Weight: 52.16 kg

DRUGS (4)
  1. ACTEMRA [Suspect]
     Active Substance: TOCILIZUMAB
     Indication: PATHOLOGICAL FRACTURE
     Dosage: ?          OTHER DOSE:162MG (0.9ML);?
     Route: 058
     Dates: start: 201904
  2. ACTEMRA [Suspect]
     Active Substance: TOCILIZUMAB
     Indication: RHEUMATOID ARTHRITIS
     Dosage: ?          OTHER DOSE:162MG (0.9ML);?
     Route: 058
     Dates: start: 201904
  3. ACTEMRA [Suspect]
     Active Substance: TOCILIZUMAB
     Indication: RHEUMATOID ARTHRITIS
  4. ACTEMRA [Suspect]
     Active Substance: TOCILIZUMAB
     Indication: PATHOLOGICAL FRACTURE

REACTIONS (3)
  - Malaise [None]
  - Musculoskeletal pain [None]
  - Localised infection [None]
